FAERS Safety Report 6803435-2 (Version None)
Quarter: 2010Q2

REPORT INFORMATION
  Report Type: 
  Country: None (occurrence: None)
  Receive Date: 20100628
  Receipt Date: 20100618
  Transmission Date: 20101027
  Serious: Yes (Hospitalization, Other)
  Sender: FDA-Public Use
  Company Number: US-PFIZER INC-2010076600

PATIENT
  Sex: Female
  Weight: 54 kg

DRUGS (13)
  1. CALAN [Suspect]
     Indication: CARDIAC DISORDER
     Dosage: UNK
     Route: 048
  2. VERAPAMIL [Suspect]
     Indication: CARDIAC DISORDER
     Dosage: UNK
  3. HYDROCHLOROTHIAZIDE [Concomitant]
     Indication: DIURETIC THERAPY
     Dosage: 25 MG, 2X/DAY
     Route: 048
  4. IPRATROPIUM [Concomitant]
     Dosage: UNK
  5. KLOR-CON [Concomitant]
     Dosage: 20 MG, ALTERNATE DAY
     Route: 048
  6. CRESTOR [Concomitant]
     Indication: BLOOD CHOLESTEROL INCREASED
     Dosage: 10 MG, 1X/DAY
     Route: 048
  7. VALSARTAN [Concomitant]
     Dosage: 320 MG, 1X/DAY
     Route: 048
  8. LACTULOSE [Concomitant]
     Dosage: UNK
  9. VITAMIN E [Concomitant]
     Dosage: UNK
  10. COENZYME Q10 [Concomitant]
     Dosage: UNK
  11. VITAMIN C [Concomitant]
     Dosage: UNK
  12. CENTRUM SILVER [Concomitant]
     Dosage: UNK
  13. HECTOROL [Concomitant]
     Dosage: UNK

REACTIONS (12)
  - ASTHENIA [None]
  - DIZZINESS [None]
  - EXTRASYSTOLES [None]
  - HIP FRACTURE [None]
  - HYPERTENSION [None]
  - INFECTION [None]
  - MALAISE [None]
  - NAUSEA [None]
  - OSTEOARTHRITIS [None]
  - OSTEOPOROSIS [None]
  - RETCHING [None]
  - UPPER LIMB FRACTURE [None]
